FAERS Safety Report 8783971 (Version 2)
Quarter: 2012Q4

REPORT INFORMATION
  Report Type: 
  Country: GB (occurrence: GB)
  Receive Date: 20120913
  Receipt Date: 20121114
  Transmission Date: 20130627
  Serious: Yes (Other)
  Sender: FDA-Public Use
  Company Number: GB-BAUSCH-BL-2012-000801

PATIENT
  Age: 24 Year
  Sex: Female

DRUGS (5)
  1. PREDNISOLONE [Suspect]
     Indication: CROHN^S DISEASE
     Dosage: 30 - 40 mg/day
     Dates: start: 2008
  2. MESALAZINE [Suspect]
     Indication: CROHN^S DISEASE
     Route: 065
  3. INFLIXIMAB [Suspect]
     Indication: CROHN^S DISEASE
     Dates: start: 2008
  4. INFLIXIMAB [Suspect]
  5. INFLIXIMAB [Suspect]

REACTIONS (3)
  - Crohn^s disease [Unknown]
  - Exposure during pregnancy [Recovered/Resolved]
  - Premature labour [Recovered/Resolved]
